FAERS Safety Report 5357870-2 (Version None)
Quarter: 2007Q2

REPORT INFORMATION
  Report Type: 
  Country: None (occurrence: None)
  Receive Date: 20070614
  Receipt Date: 20070606
  Transmission Date: 20071010
  Serious: Yes (Life-Threatening, Hospitalization, Other)
  Sender: FDA-Public Use
  Company Number: GB-MERCK-0705GBR00047

PATIENT
  Age: 71 Year
  Sex: Male
  Weight: 104 kg

DRUGS (8)
  1. ZOCOR [Suspect]
     Route: 048
     Dates: start: 20000101, end: 20070423
  2. ROSIGLITAZONE MALEATE [Suspect]
     Route: 048
     Dates: start: 20050411, end: 20060601
  3. ROSIGLITAZONE MALEATE [Suspect]
     Route: 048
     Dates: start: 20060101, end: 20070423
  4. ASPIRIN [Concomitant]
     Route: 065
  5. ATENOLOL [Concomitant]
     Route: 065
  6. BISOPROLOL [Concomitant]
     Route: 065
  7. FUROSEMIDE [Concomitant]
     Route: 065
  8. METFORMIN [Concomitant]
     Route: 065

REACTIONS (6)
  - ACUTE CORONARY SYNDROME [None]
  - ATRIAL FIBRILLATION [None]
  - INTESTINAL ISCHAEMIA [None]
  - LEFT VENTRICULAR FAILURE [None]
  - PANCREATITIS ACUTE [None]
  - PULMONARY OEDEMA [None]
